FAERS Safety Report 7334694 (Version 5)
Quarter: 2013Q1

REPORT INFORMATION
  Report Type: Spontaneous
  Country: US (occurrence: US)
  Receive Date: 20100329
  Receipt Date: 20130128
  Transmission Date: 20140127
  Serious: Yes (Death, Life-Threatening, Hospitalization, Other)
  Sender: FDA-Public Use
  Company Number: US-JNJFOC-20100306721

PATIENT
  Age: 50 None
  Sex: Male
  Weight: 70.31 kg

DRUGS (8)
  1. SIMPONI [Suspect]
     Indication: RHEUMATOID ARTHRITIS
     Route: 058
     Dates: start: 20091210, end: 20100304
  2. HUMIRA [Suspect]
     Indication: RHEUMATOID ARTHRITIS
     Route: 058
     Dates: start: 20100304
  3. ATIVAN [Concomitant]
     Indication: PSYCHOTIC DISORDER
  4. DEPAKOTE [Concomitant]
     Indication: PSYCHOTIC DISORDER
  5. FOLIC ACID [Concomitant]
     Indication: RHEUMATOID ARTHRITIS
     Dates: start: 20090430
  6. METHOTREXATE [Concomitant]
     Indication: RHEUMATOID ARTHRITIS
     Dates: start: 20090616
  7. PREDNISONE [Concomitant]
     Indication: RHEUMATOID ARTHRITIS
     Dates: start: 20090820
  8. CELECOXIB [Concomitant]

REACTIONS (7)
  - Aplastic anaemia [Fatal]
  - Cardiac failure [Not Recovered/Not Resolved]
  - Pancytopenia [Unknown]
  - Lymphoma [Unknown]
  - Urticaria [Recovered/Resolved]
  - Drug ineffective [Unknown]
  - Pain [Unknown]
